FAERS Safety Report 5546638-X (Version None)
Quarter: 2007Q4

REPORT INFORMATION
  Report Type: 
  Country: None (occurrence: None)
  Receive Date: 20071211
  Receipt Date: 20070214
  Transmission Date: 20080405
  Serious: No
  Sender: FDA-Public Use
  Company Number: US-AMGEN-KDL211100

PATIENT
  Sex: Female
  Weight: 50.8 kg

DRUGS (3)
  1. ENBREL [Suspect]
     Indication: RHEUMATOID ARTHRITIS
     Dates: start: 20060201, end: 20070212
  2. SYNTHROID [Concomitant]
  3. ACTONEL [Concomitant]

REACTIONS (2)
  - HERPES ZOSTER [None]
  - UPPER RESPIRATORY TRACT INFECTION [None]
